FAERS Safety Report 18684062 (Version 1)
Quarter: 2020Q4

REPORT INFORMATION
  Report Type: Spontaneous
  Country: US (occurrence: US)
  Receive Date: 20201230
  Receipt Date: 20201230
  Transmission Date: 20210114
  Serious: Yes (Death, Hospitalization)
  Sender: FDA-Public Use
  Company Number: US-MYLANLABS-2020M1106257

PATIENT
  Age: 65 Year
  Sex: Male

DRUGS (3)
  1. TACROLIMUS. [Suspect]
     Active Substance: TACROLIMUS
     Indication: IMMUNOSUPPRESSANT DRUG THERAPY
     Dosage: 2 MILLIGRAM, BID
     Route: 065
  2. PREDNISONE. [Suspect]
     Active Substance: PREDNISONE
     Indication: IMMUNOSUPPRESSANT DRUG THERAPY
     Dosage: 5 MILLIGRAM, QD
     Route: 065
  3. MYCOPHENOLATE MOFETIL. [Suspect]
     Active Substance: MYCOPHENOLATE MOFETIL
     Indication: IMMUNOSUPPRESSANT DRUG THERAPY
     Dosage: 250 MILLIGRAM, BID
     Route: 065

REACTIONS (16)
  - Escherichia infection [Unknown]
  - Brain abscess [Fatal]
  - Urosepsis [Unknown]
  - Hypoglycaemia [Fatal]
  - Clostridium difficile colitis [Unknown]
  - Mycobacterium haemophilum infection [Fatal]
  - Tenosynovitis [Fatal]
  - Osteomyelitis chronic [Fatal]
  - Generalised oedema [Fatal]
  - Pleural effusion [Fatal]
  - Renal failure [Fatal]
  - Toxoplasmosis [Fatal]
  - Acidosis [Fatal]
  - Cellulitis [Fatal]
  - Septic shock [Fatal]
  - Colitis [Fatal]
